FAERS Safety Report 16380983 (Version 1)
Quarter: 2019Q2

REPORT INFORMATION
  Report Type: Spontaneous
  Country: CN (occurrence: CN)
  Receive Date: 20190602
  Receipt Date: 20190602
  Transmission Date: 20190711
  Serious: Yes (Other)
  Sender: FDA-Public Use
  Company Number: PHHY2019CN122929

PATIENT
  Age: 3 Year
  Sex: Female

DRUGS (8)
  1. AMBROXOL [Suspect]
     Active Substance: AMBROXOL
     Indication: ARTHRALGIA
     Dosage: 7.5 MG, BID
     Route: 065
  2. METHYLPREDNISOLONE. [Suspect]
     Active Substance: METHYLPREDNISOLONE
     Indication: TONSILLITIS
  3. CEFTRIAXONE. [Suspect]
     Active Substance: CEFTRIAXONE
     Indication: ARTHRALGIA
     Dosage: 1.2 G, UNK
     Route: 065
  4. CEFTRIAXONE. [Suspect]
     Active Substance: CEFTRIAXONE
     Indication: TONSILLITIS
  5. METHYLPREDNISOLONE. [Suspect]
     Active Substance: METHYLPREDNISOLONE
     Indication: ARTHRALGIA
     Dosage: 15 MG, UNK
     Route: 065
  6. AMBROXOL [Suspect]
     Active Substance: AMBROXOL
     Indication: TONSILLITIS
  7. AMOXICILLIN + CLAVULANATE POTASSIUM [Suspect]
     Active Substance: AMOXICILLIN\CLAVULANATE POTASSIUM
     Indication: ARTHRALGIA
     Dosage: 0.45 MG, BID
     Route: 065
  8. AMOXICILLIN + CLAVULANATE POTASSIUM [Suspect]
     Active Substance: AMOXICILLIN\CLAVULANATE POTASSIUM
     Indication: TONSILLITIS

REACTIONS (3)
  - Product prescribing error [Unknown]
  - Product use in unapproved indication [Unknown]
  - Drug abuse [Unknown]
